FAERS Safety Report 25414228 (Version 1)
Quarter: 2025Q2

REPORT INFORMATION
  Report Type: Spontaneous
  Country: KR (occurrence: KR)
  Receive Date: 20250609
  Receipt Date: 20250609
  Transmission Date: 20250716
  Serious: Yes (Other)
  Sender: PFIZER
  Company Number: KR-PFIZER INC-202500115092

PATIENT
  Age: 81 Year
  Sex: Female

DRUGS (4)
  1. ALDACTONE [Suspect]
     Active Substance: SPIRONOLACTONE
     Indication: Sinus node dysfunction
     Dosage: 1 DF, 1X/DAY
     Dates: start: 20220113
  2. AMLODIPINE BESYLATE [Suspect]
     Active Substance: AMLODIPINE BESYLATE
     Indication: Sinus node dysfunction
     Dosage: 1 DF, 1X/DAY
     Dates: start: 20220113
  3. NEBIVOLOL HYDROCHLORIDE [Suspect]
     Active Substance: NEBIVOLOL HYDROCHLORIDE
     Indication: Sinus node dysfunction
     Dosage: 1 DF, 1X/DAY
     Dates: start: 20220113
  4. HYDROCHLOROTHIAZIDE [Suspect]
     Active Substance: HYDROCHLOROTHIAZIDE
     Indication: Sinus node dysfunction
     Dosage: 1 DF, 1X/DAY
     Dates: start: 20220113

REACTIONS (2)
  - Syncope [Recovered/Resolved]
  - Dizziness [Recovered/Resolved]

NARRATIVE: CASE EVENT DATE: 20230215
